FAERS Safety Report 9715777 (Version 3)
Quarter: 2014Q1

REPORT INFORMATION
  Report Type: Spontaneous
  Country: US (occurrence: US)
  Receive Date: 20131127
  Receipt Date: 20140129
  Transmission Date: 20141002
  Serious: Yes (Other)
  Sender: FDA-Public Use
  Company Number: US-009507513-1311USA009312

PATIENT
  Age: 85 Year
  Sex: Male
  Weight: 74.84 kg

DRUGS (10)
  1. TICE BCG LIVE [Suspect]
     Indication: BLADDER CANCER
     Dosage: UNK
     Route: 043
     Dates: start: 20131022, end: 20131022
  2. TICE BCG LIVE [Suspect]
     Dosage: UNK
     Route: 043
     Dates: start: 20131119, end: 20131119
  3. OXYBUTYNIN [Concomitant]
     Dosage: UNK
     Route: 048
  4. ALEVE [Concomitant]
     Dosage: UNK, PRN
     Route: 048
  5. PROPRANOLOL HYDROCHLORIDE [Concomitant]
     Dosage: UNK
  6. PRIMIDONE [Concomitant]
     Dosage: UNK
  7. VITAMIN E [Concomitant]
  8. ZOCOR [Concomitant]
     Dosage: UNK
     Route: 048
  9. TERAZOSIN HYDROCHLORIDE [Concomitant]
     Dosage: UNK
     Route: 048
  10. CIPRO (CIPROFLOXACIN LACTATE) [Suspect]
     Dosage: UNK
     Route: 048
     Dates: end: 20131127

REACTIONS (11)
  - Loss of consciousness [Recovered/Resolved]
  - Prostate cancer [Unknown]
  - Organic erectile dysfunction [Unknown]
  - Hypertonic bladder [Unknown]
  - Bladder disorder [Unknown]
  - Urinary tract infection [Unknown]
  - Haematuria [Unknown]
  - Influenza like illness [Recovered/Resolved]
  - Bladder outlet obstruction [Unknown]
  - Asthenia [Recovered/Resolved]
  - Pyrexia [Recovered/Resolved]
